FAERS Safety Report 12885271 (Version 1)
Quarter: 2016Q4

REPORT INFORMATION
  Report Type: Spontaneous
  Country: None (occurrence: US)
  Receive Date: 20161025
  Receipt Date: 20161025
  Transmission Date: 20170207
  Serious: Yes (Other)
  Sender: FDA-Public Use
  Company Number: None

PATIENT
  Age: 71 Year
  Sex: Male
  Weight: 96.39 kg

DRUGS (14)
  1. VITAMIN E [Concomitant]
     Active Substance: .ALPHA.-TOCOPHEROL
  2. TYLENOL [Concomitant]
     Active Substance: ACETAMINOPHEN
  3. BRIMONIDINE [Concomitant]
     Active Substance: BRIMONIDINE TARTRATE
  4. ALISERTIB [Suspect]
     Active Substance: ALISERTIB
     Indication: GLIOBLASTOMA MULTIFORME
     Route: 048
  5. DORZOLAMIDE [Concomitant]
     Active Substance: DORZOLAMIDE
  6. VITAMIN A [Concomitant]
     Active Substance: VITAMIN A
  7. COPPER [Concomitant]
     Active Substance: COPPER
  8. TADALAFIL [Concomitant]
     Active Substance: TADALAFIL
  9. VITAMIN C [Concomitant]
     Active Substance: ASCORBIC ACID
  10. MIRABEGRON [Concomitant]
     Active Substance: MIRABEGRON
  11. LATANOPROST. [Concomitant]
     Active Substance: LATANOPROST
  12. ZINC [Concomitant]
     Active Substance: ZINC\ZINC CHLORIDE
  13. DIFLUCAN [Concomitant]
     Active Substance: FLUCONAZOLE
  14. DECADRON [Concomitant]
     Active Substance: DEXAMETHASONE

REACTIONS (3)
  - Balance disorder [None]
  - Fall [None]
  - Oral candidiasis [None]

NARRATIVE: CASE EVENT DATE: 20161020
